FAERS Safety Report 20826654 (Version 1)
Quarter: 2022Q2

REPORT INFORMATION
  Report Type: Spontaneous
  Country: US (occurrence: None)
  Receive Date: 20220513
  Receipt Date: 20220513
  Transmission Date: 20220721
  Serious: No
  Sender: FDA-Public Use
  Company Number: None

PATIENT
  Age: 34 Year
  Sex: Female
  Weight: 49.05 kg

DRUGS (1)
  1. SUAVE POWDER AEROSOL ANTIPERSPIRANT AND DEODORANT [Suspect]
     Active Substance: ALUMINUM CHLOROHYDRATE
     Dosage: OTHER STRENGTH : 24 HR;?

REACTIONS (3)
  - Rash papular [None]
  - Confusional state [None]
  - Product substitution issue [None]

NARRATIVE: CASE EVENT DATE: 20220226
